FAERS Safety Report 18311532 (Version 1)
Quarter: 2020Q3

REPORT INFORMATION
  Report Type: Spontaneous
  Country: US (occurrence: US)
  Receive Date: 20200925
  Receipt Date: 20200925
  Transmission Date: 20201103
  Serious: No
  Sender: FDA-Public Use
  Company Number: US-AMGEN-USASP2020154285

PATIENT
  Age: 44 Year
  Sex: Female

DRUGS (3)
  1. EPOGEN [Suspect]
     Active Substance: ERYTHROPOIETIN
     Indication: REFRACTORY CYTOPENIA WITH UNILINEAGE DYSPLASIA
     Dosage: UNK
     Route: 065
  2. IRON DEXTRAN [Concomitant]
     Active Substance: IRON DEXTRAN
     Indication: REFRACTORY CYTOPENIA WITH UNILINEAGE DYSPLASIA
     Dosage: UNK
     Route: 042
  3. IRON [Concomitant]
     Active Substance: IRON
     Indication: REFRACTORY CYTOPENIA WITH UNILINEAGE DYSPLASIA
     Dosage: UNK
     Route: 048

REACTIONS (1)
  - Off label use [Unknown]
